FAERS Safety Report 4491710-9 (Version None)
Quarter: 2004Q4

REPORT INFORMATION
  Report Type: 
  Country: None (occurrence: None)
  Receive Date: 20041101
  Receipt Date: 20041020
  Transmission Date: 20050328
  Serious: Yes (Hospitalization)
  Sender: FDA-Public Use
  Company Number: 2004082395

PATIENT
  Age: 22 Year
  Sex: Female

DRUGS (1)
  1. NICORETTE [Suspect]
     Indication: SMOKING CESSATION THERAPY
     Dosage: 10 MG CARTRIDGE , INHALATION
     Route: 055

REACTIONS (2)
  - GRAND MAL CONVULSION [None]
  - ROAD TRAFFIC ACCIDENT [None]
